FAERS Safety Report 7310612-3 (Version None)
Quarter: 2011Q1

REPORT INFORMATION
  Report Type: 
  Country: None (occurrence: None)
  Receive Date: 20110224
  Receipt Date: 20100416
  Transmission Date: 20110831
  Serious: No
  Sender: FDA-Public Use
  Company Number: US-BRISTOL-MYERS SQUIBB COMPANY-15066673

PATIENT
  Sex: Male

DRUGS (1)
  1. GLUCOPHAGE [Suspect]

REACTIONS (2)
  - DIARRHOEA [None]
  - MEDICATION ERROR [None]
